FAERS Safety Report 5497183-1 (Version None)
Quarter: 2007Q4

REPORT INFORMATION
  Report Type: 
  Country: None (occurrence: None)
  Receive Date: 20071025
  Receipt Date: 20061018
  Transmission Date: 20080405
  Serious: No
  Sender: FDA-Public Use
  Company Number: A0619064A

PATIENT
  Age: 46 Year
  Sex: Male

DRUGS (3)
  1. ADVAIR DISKUS 100/50 [Suspect]
     Indication: ASTHMA
     Dosage: 1PUFF TWICE PER DAY
     Route: 055
     Dates: start: 20060401
  2. ALOPURINOL [Concomitant]
  3. INDOMETHACIN [Concomitant]

REACTIONS (2)
  - DRUG INEFFECTIVE [None]
  - PHARMACEUTICAL PRODUCT COMPLAINT [None]
